FAERS Safety Report 4957484-X (Version None)
Quarter: 2006Q1

REPORT INFORMATION
  Report Type: 
  Country: None (occurrence: None)
  Receive Date: 20060328
  Receipt Date: 20060328
  Transmission Date: 20060701
  Serious: No
  Sender: FDA-Public Use
  Company Number: None

PATIENT
  Age: 39 Year
  Sex: Male

DRUGS (1)
  1. OPTIRAY 320 [Suspect]
     Dosage: 100 ML ONCE IV PUSH
     Route: 042
     Dates: start: 20060208, end: 20060208

REACTIONS (2)
  - BLOOD PRESSURE DIASTOLIC INCREASED [None]
  - URTICARIA [None]
